FAERS Safety Report 14227220 (Version 1)
Quarter: 2017Q4

REPORT INFORMATION
  Report Type: Spontaneous
  Country: US (occurrence: US)
  Receive Date: 20171127
  Receipt Date: 20171127
  Transmission Date: 20180321
  Serious: No
  Sender: FDA-Public Use
  Company Number: US-ASTRAZENECA-2017SF10564

PATIENT
  Sex: Female

DRUGS (2)
  1. BYDUREON [Suspect]
     Active Substance: EXENATIDE
     Dosage: SDT, 2 MG, UNKNOWN
     Route: 065
  2. BYDUREON [Suspect]
     Active Substance: EXENATIDE
     Dosage: PEN
     Route: 065

REACTIONS (2)
  - Asthenia [Unknown]
  - Product quality issue [Unknown]
